FAERS Safety Report 8290519 (Version 2)
Quarter: 2013Q2

REPORT INFORMATION
  Report Type: Spontaneous
  Country: US (occurrence: None)
  Receive Date: 20111122
  Receipt Date: 20120703
  Transmission Date: 20140414
  Serious: Yes (Other)
  Sender: FDA-Public Use
  Company Number: PHEH2011US02335

PATIENT
  Age: 59 Year
  Sex: Female

DRUGS (6)
  1. GILENYA (FTY) [Suspect]
     Indication: MULTIPLE SCLEROSIS
     Dosage: 0.5 MG, DAILY, ORAL
     Route: 048
     Dates: start: 20110624
  2. LAMOTRIGIN (LAMOTRIGINE) [Concomitant]
  3. BUPROPION (BUPROPION) [Concomitant]
  4. VALTREX (VALACICLOVIR HYDROCHLORIDE) [Concomitant]
  5. INVEGA (PALIPERIDONE) [Concomitant]
  6. ALENDRONATE SODIUM (ALENDRONATE SODIUM) [Concomitant]

REACTIONS (2)
  - VERTIGO [None]
  - DIZZINESS [None]
